FAERS Safety Report 9467523 (Version 1)
Quarter: 2013Q3

REPORT INFORMATION
  Report Type: Spontaneous
  Country: US (occurrence: None)
  Receive Date: 20130819
  Receipt Date: 20130819
  Transmission Date: 20140515
  Serious: No
  Sender: FDA-Public Use
  Company Number: None

PATIENT
  Age: 51 Year
  Sex: Male

DRUGS (1)
  1. NEXAVAR 200MG BAYER [Suspect]
     Indication: HEPATIC CANCER
     Dosage: 400MG/200MG 400MG EVERY MORNING AND 200MG EVERY  EVENING BY MOUTH
     Route: 048
     Dates: start: 20130729

REACTIONS (2)
  - Rash [None]
  - Rash [None]
